FAERS Safety Report 7966180-6 (Version None)
Quarter: 2011Q4

REPORT INFORMATION
  Report Type: 
  Country: None (occurrence: None)
  Receive Date: 20111208
  Receipt Date: 20111130
  Transmission Date: 20120403
  Serious: Yes (Hospitalization, Other)
  Sender: FDA-Public Use
  Company Number: PHHY2010CA08772

PATIENT
  Sex: Male

DRUGS (1)
  1. ZOMETA [Suspect]
     Indication: NEOPLASM PROSTATE
     Dosage: 4 MG EVERY 4 WEEKS
     Route: 042
     Dates: start: 20100106

REACTIONS (6)
  - FALL [None]
  - PARALYSIS [None]
  - INFLUENZA [None]
  - CEREBROVASCULAR ACCIDENT [None]
  - HIP FRACTURE [None]
  - GENERAL PHYSICAL HEALTH DETERIORATION [None]
